FAERS Safety Report 20222142 (Version 1)
Quarter: 2021Q4

REPORT INFORMATION
  Report Type: Spontaneous
  Country: US (occurrence: None)
  Receive Date: 20211222
  Receipt Date: 20211222
  Transmission Date: 20220303
  Serious: No
  Sender: FDA-Public Use
  Company Number: None

PATIENT
  Age: 18 Year
  Sex: Female
  Weight: 59.8 kg

DRUGS (1)
  1. INSULIN ASPART [Suspect]
     Active Substance: INSULIN ASPART
     Dosage: OTHER STRENGTH : 100 UNT/ML;?FREQUENCY : DAILY;?
     Dates: start: 20211118, end: 20211215

REACTIONS (1)
  - Rash [None]
